FAERS Safety Report 21057990 (Version 1)
Quarter: 2022Q3

REPORT INFORMATION
  Report Type: Spontaneous
  Country: US (occurrence: None)
  Receive Date: 20220707
  Receipt Date: 20220707
  Transmission Date: 20221027
  Serious: Yes (Hospitalization)
  Sender: FDA-Public Use
  Company Number: None

PATIENT
  Age: 67 Year
  Sex: Male

DRUGS (1)
  1. CAPECITABINE [Suspect]
     Active Substance: CAPECITABINE
     Dosage: 1800MG BID ORAL
     Route: 048
     Dates: end: 20220615

REACTIONS (4)
  - Hiccups [None]
  - Dehydration [None]
  - Adrenal insufficiency [None]
  - Blood glucose decreased [None]

NARRATIVE: CASE EVENT DATE: 20220624
